FAERS Safety Report 13386334 (Version 1)
Quarter: 2017Q1

REPORT INFORMATION
  Report Type: Report from Study
  Country: None (occurrence: US)
  Receive Date: 20170330
  Receipt Date: 20170330
  Transmission Date: 20170429
  Serious: Yes (Other)
  Sender: FDA-Public Use
  Company Number: US-ABBVIE-17K-163-1920732-00

PATIENT
  Sex: Female

DRUGS (2)
  1. HUMIRA [Suspect]
     Active Substance: ADALIMUMAB
     Indication: CROHN^S DISEASE
     Route: 058
  2. HUMIRA [Suspect]
     Active Substance: ADALIMUMAB
     Route: 058

REACTIONS (5)
  - Intestinal resection [Recovered/Resolved]
  - Ileostomy [Recovered/Resolved]
  - Genital rash [Not Recovered/Not Resolved]
  - Gastrointestinal stoma complication [Unknown]
  - Infection [Unknown]

NARRATIVE: CASE EVENT DATE: 2014
